FAERS Safety Report 8765799 (Version 1)
Quarter: 2012Q4

REPORT INFORMATION
  Report Type: 
  Country: US (occurrence: US)
  Receive Date: 20120904
  Receipt Date: 20120904
  Transmission Date: 20130627
  Serious: No
  Sender: FDA-Public Use
  Company Number: US-PFIZER INC-2012215066

PATIENT
  Sex: Male
  Weight: 104 kg

DRUGS (3)
  1. TIKOSYN [Suspect]
     Indication: ATRIAL FIBRILLATION
     Dosage: 500 ug, 2x/day
     Dates: start: 20120820
  2. METFORMIN [Concomitant]
     Dosage: 500 mg, 2x/day
  3. METOPROLOL [Concomitant]
     Dosage: 2.5 mg, 2x/day

REACTIONS (1)
  - Body temperature increased [Unknown]
